FAERS Safety Report 13880199 (Version 3)
Quarter: 2017Q4

REPORT INFORMATION
  Report Type: Spontaneous
  Country: US (occurrence: US)
  Receive Date: 20170818
  Receipt Date: 20171218
  Transmission Date: 20180320
  Serious: No
  Sender: FDA-Public Use
  Company Number: US-GLAXOSMITHKLINE-US2017125407

PATIENT
  Age: 7 Year
  Sex: Female

DRUGS (1)
  1. CEFTIN [Suspect]
     Active Substance: CEFUROXIME AXETIL
     Indication: EAR INFECTION
     Dosage: UNK UNK, BID
     Route: 048
     Dates: start: 20170808

REACTIONS (6)
  - Liquid product physical issue [Unknown]
  - Ear pain [Unknown]
  - Product quality issue [Unknown]
  - Vomiting [Recovered/Resolved]
  - Underdose [Unknown]
  - Product storage error [Recovered/Resolved]

NARRATIVE: CASE EVENT DATE: 20170809
